FAERS Safety Report 10973217 (Version 1)
Quarter: 2015Q2

REPORT INFORMATION
  Report Type: Spontaneous
  Country: US (occurrence: US)
  Receive Date: 20150401
  Receipt Date: 20150401
  Transmission Date: 20150821
  Serious: No
  Sender: FDA-Public Use
  Company Number: US-AMGEN-USASP2014077680

PATIENT
  Age: 0 Day
  Sex: Male

DRUGS (9)
  1. FISH OIL [Concomitant]
     Active Substance: FISH OIL
     Dosage: 1200 MG, QD
     Route: 063
     Dates: start: 20140830
  2. VITAMIN D3 [Concomitant]
     Active Substance: CHOLECALCIFEROL
     Dosage: 2000 IU, QWK
     Route: 048
     Dates: start: 201408
  3. PRENATAL VITAMINS                  /07499601/ [Concomitant]
     Dosage: UNK UNK, BID
     Route: 063
     Dates: start: 20140830
  4. DTAP [Concomitant]
     Active Substance: DIPHTHERIA AND TETANUS TOXOIDS AND ACELLULAR PERTUSSIS VACCINE ADSORBED
     Dosage: UNK 3 DOSES
  5. PROBIOTICS                         /07325001/ [Concomitant]
     Dosage: HLC NEONATE 1-3X/WEEK
     Route: 048
     Dates: start: 201408
  6. VITAMIN A                          /00056001/ [Concomitant]
     Active Substance: RETINOL
     Dosage: PRN
     Dates: start: 2015
  7. ENBREL [Suspect]
     Active Substance: ETANERCEPT
     Indication: EXPOSURE DURING BREAST FEEDING
     Dosage: 50 MG, QWK
     Route: 063
     Dates: start: 20120427, end: 201412
  8. VITAMIN C [Concomitant]
     Active Substance: ASCORBIC ACID
     Dosage: PRN
     Dates: start: 2015
  9. PREVNAR 13 [Concomitant]
     Active Substance: PNEUMOCOCCAL 13-VALENT CONJUGATE VACCINE
     Dosage: UNK 1 DOSE

REACTIONS (2)
  - Exposure during breast feeding [Not Recovered/Not Resolved]
  - Congenital skin dimples [Unknown]

NARRATIVE: CASE EVENT DATE: 20140830
